FAERS Safety Report 14635971 (Version 4)
Quarter: 2021Q2

REPORT INFORMATION
  Report Type: Spontaneous
  Country: US (occurrence: US)
  Receive Date: 20180314
  Receipt Date: 20210510
  Transmission Date: 20210716
  Serious: Yes (Hospitalization)
  Sender: FDA-Public Use
  Company Number: US-VERTEX PHARMACEUTICALS-2018-001806

PATIENT
  Age: 16 Year
  Sex: Female

DRUGS (11)
  1. ALBUTEROL                          /00139501/ [Concomitant]
     Active Substance: ALBUTEROL
  2. LEVOCETIRIZINE [Concomitant]
     Active Substance: LEVOCETIRIZINE
  3. BUDESONIDE;FORMOTEROL [Concomitant]
     Active Substance: BUDESONIDE\FORMOTEROL
  4. SODIUM CHLORIDE. [Concomitant]
     Active Substance: SODIUM CHLORIDE
     Dosage: INHALATION SOLUTION
  5. DORNASE ALFA. [Concomitant]
     Active Substance: DORNASE ALFA
  6. ORKAMBI [Suspect]
     Active Substance: IVACAFTOR\LUMACAFTOR
     Indication: CYSTIC FIBROSIS
     Dosage: 2 TABLETS, BID (200/125 MG EACH), WITH FATTY MEAL/ SNACK
     Route: 048
     Dates: start: 20151222, end: 20160126
  7. MONTELUKAST [Concomitant]
     Active Substance: MONTELUKAST SODIUM
  8. ORKAMBI [Suspect]
     Active Substance: IVACAFTOR\LUMACAFTOR
     Dosage: 2 TABLETS, BID (200/125 MG EACH) WITH FATTY MEAL/ SNACK
     Route: 048
     Dates: start: 20160208, end: 20160211
  9. TOBRAMYCIN. [Concomitant]
     Active Substance: TOBRAMYCIN
     Dosage: INHALATION SOLUTION
  10. ORKAMBI [Suspect]
     Active Substance: IVACAFTOR\LUMACAFTOR
     Dosage: 1 DOSAGE FORM, BID1 TABLET, BID (200/125 MG EACH) WITH FATTY MEAL/ SNACK
     Route: 048
     Dates: start: 20160220, end: 20160226
  11. PANCRELIPASE. [Concomitant]
     Active Substance: PANCRELIPASE

REACTIONS (9)
  - Vomiting [Unknown]
  - Respiratory tract infection viral [Unknown]
  - Pain [Unknown]
  - Respiration abnormal [Unknown]
  - Headache [Unknown]
  - Illness [Unknown]
  - Rash morbilliform [Recovered/Resolved]
  - Hospitalisation [Unknown]
  - Pyrexia [Unknown]

NARRATIVE: CASE EVENT DATE: 201512
